FAERS Safety Report 13460458 (Version 1)
Quarter: 2017Q2

REPORT INFORMATION
  Report Type: Spontaneous
  Country: US (occurrence: US)
  Receive Date: 20170420
  Receipt Date: 20170420
  Transmission Date: 20170830
  Serious: No
  Sender: FDA-Public Use
  Company Number: US-PFIZER INC-2017074908

PATIENT
  Age: 73 Year
  Sex: Male

DRUGS (10)
  1. ACETAMINOPHEN W/HYDROCODONE [Concomitant]
     Active Substance: ACETAMINOPHEN\HYDROCODONE
     Dosage: 1 TABLET BY MOUTH EVERY 6 HOURS
     Route: 048
  2. BROMSITE 0.075% [Concomitant]
     Active Substance: BROMFENAC SODIUM
     Dosage: UNK
  3. ALPHA LIPOIC ACID [Concomitant]
     Active Substance: .ALPHA.-LIPOIC ACID
     Indication: NEUROPATHY PERIPHERAL
     Dosage: 600 MG, 1 CAPSULE BY MOUTH EVERY DAY
     Route: 048
  4. GABAPENTIN. [Concomitant]
     Active Substance: GABAPENTIN
     Dosage: 300 MG, 3 CAPSULES BY MOUTH EVERY MORNING AND EVERY EVENING AND AT BEDTIME
     Route: 048
  5. ASPIRIN 81 [Concomitant]
     Active Substance: ASPIRIN
     Dosage: 81 MG, BY MOUTH EVERY DAY
     Route: 048
  6. ZINC. [Concomitant]
     Active Substance: ZINC
     Dosage: 50 MG, 1 TABLET BY MOUTH EVERY DAY
     Route: 048
  7. LYRICA [Suspect]
     Active Substance: PREGABALIN
     Indication: NEUROPATHY PERIPHERAL
     Dosage: 75 MG, 2X/DAY
     Route: 048
  8. LYRICA [Suspect]
     Active Substance: PREGABALIN
     Dosage: 150 MG, 2X/DAY
     Route: 048
  9. AMILORIDE [Concomitant]
     Active Substance: AMILORIDE
     Indication: OEDEMA PERIPHERAL
     Dosage: 5 MG TABLET, 1 TO 2 TABLETS ONCE DAILY
     Route: 048
  10. MELOXICAM. [Concomitant]
     Active Substance: MELOXICAM
     Dosage: 15 MG, 1 TABLET BY MOUTH ONCE DAILY WITH FOOD OR MILK
     Route: 048

REACTIONS (4)
  - Blood urea increased [Unknown]
  - Peripheral swelling [Unknown]
  - Constipation [Unknown]
  - Loss of personal independence in daily activities [Unknown]
